FAERS Safety Report 23369432 (Version 1)
Quarter: 2024Q1

REPORT INFORMATION
  Report Type: Spontaneous
  Country: US (occurrence: US)
  Receive Date: 20240105
  Receipt Date: 20240105
  Transmission Date: 20240410
  Serious: Yes (Other)
  Sender: FDA-Public Use
  Company Number: US-SUN PHARMACEUTICAL INDUSTRIES LTD-2023R1-426042

PATIENT
  Age: 70 Year
  Sex: Male

DRUGS (3)
  1. METOPROLOL [Suspect]
     Active Substance: METOPROLOL
     Indication: Atrial fibrillation
     Dosage: 100 MILLIGRAM, BID
     Route: 048
  2. FUROSEMIDE [Suspect]
     Active Substance: FUROSEMIDE
     Indication: Acute kidney injury
     Dosage: 40 MILLIGRAM, QD
     Route: 042
  3. SODIUM BICARBONATE [Suspect]
     Active Substance: SODIUM BICARBONATE
     Indication: Acute kidney injury
     Dosage: UNK
     Route: 065

REACTIONS (1)
  - Congenital multiplex arthrogryposis [Recovering/Resolving]
